FAERS Safety Report 7956864-8 (Version None)
Quarter: 2011Q4

REPORT INFORMATION
  Report Type: 
  Country: None (occurrence: None)
  Receive Date: 20111205
  Receipt Date: 20111007
  Transmission Date: 20120403
  Serious: No
  Sender: FDA-Public Use
  Company Number: US-BAYER-2011-097483

PATIENT
  Age: 67 Year
  Sex: Female
  Weight: 73 kg

DRUGS (11)
  1. PRAVASTATIN SODIUM [Concomitant]
  2. METOPROLOL [Concomitant]
  3. GLUCOSAMINE [GLUCOSAMINE] [Concomitant]
  4. GINKGO BILOBA [Concomitant]
  5. VITAMIN E [Concomitant]
  6. ALEVE (CAPLET) [Suspect]
     Dosage: UNK, QD (TAKING 2-4 DAILY + 2 AT HS)
     Route: 048
     Dates: start: 20110901
  7. PRAMIPEXOLE DIHYDROCHLORIDE [Concomitant]
  8. PLAVIX [Concomitant]
  9. OMEPRAZOLE [Concomitant]
  10. CARVEDILOL [Concomitant]
  11. LISINOPRIL [Concomitant]

REACTIONS (4)
  - OEDEMA PERIPHERAL [None]
  - CONTUSION [None]
  - FLUID RETENTION [None]
  - NO ADVERSE EVENT [None]
